FAERS Safety Report 6392082-5 (Version None)
Quarter: 2009Q4

REPORT INFORMATION
  Report Type: 
  Country: None (occurrence: None)
  Receive Date: 20091007
  Receipt Date: 20090923
  Transmission Date: 20100525
  Serious: Yes (Death, Hospitalization)
  Sender: FDA-Public Use
  Company Number: DE-GENENTECH-290009

PATIENT
  Sex: Male

DRUGS (3)
  1. BEVACIZUMAB [Suspect]
     Indication: NON-SMALL CELL LUNG CANCER
     Dosage: 15 MG/KG, 1 X PER 22 DAY
     Route: 042
     Dates: start: 20090330
  2. GEMCITABINE [Suspect]
     Indication: NON-SMALL CELL LUNG CANCER
     Dosage: 1250 MG/M2,
     Route: 042
     Dates: start: 20090330
  3. CISPLATIN [Suspect]
     Indication: NON-SMALL CELL LUNG CANCER
     Dosage: 80 MG/M2, 1 X PER 22 DAY
     Route: 042
     Dates: start: 20090330

REACTIONS (3)
  - LEUKOPENIA [None]
  - PAIN [None]
  - RENAL FAILURE ACUTE [None]
